FAERS Safety Report 7861745-4 (Version None)
Quarter: 2011Q4

REPORT INFORMATION
  Report Type: 
  Country: None (occurrence: None)
  Receive Date: 20111027
  Receipt Date: 20111019
  Transmission Date: 20120403
  Serious: Yes (Other)
  Sender: FDA-Public Use
  Company Number: NL-GILEAD-2011-0045378

PATIENT
  Sex: Male

DRUGS (2)
  1. HEPSERA [Suspect]
     Indication: HEPATITIS B
     Dosage: UNK
     Dates: start: 20070101
  2. VIREAD [Suspect]
     Indication: HEPATITIS B
     Dosage: UNK
     Dates: start: 20100101

REACTIONS (3)
  - DRUG RESISTANCE [None]
  - TRANSAMINASES INCREASED [None]
  - RENAL IMPAIRMENT [None]
